FAERS Safety Report 19974774 (Version 4)
Quarter: 2022Q3

REPORT INFORMATION
  Report Type: Report from Study
  Country: US (occurrence: US)
  Receive Date: 20211020
  Receipt Date: 20220913
  Transmission Date: 20221027
  Serious: Yes (Other)
  Sender: FDA-Public Use
  Company Number: US-NOVARTISTESTPH-NVSC2021US238657

PATIENT
  Sex: Male

DRUGS (1)
  1. COSENTYX [Suspect]
     Active Substance: SECUKINUMAB
     Indication: Psoriatic arthropathy
     Dosage: 300 MG, QMO
     Route: 058

REACTIONS (6)
  - Lower limb fracture [Recovering/Resolving]
  - Weight decreased [Recovering/Resolving]
  - Arthralgia [Unknown]
  - Depression [Unknown]
  - Skin discolouration [Unknown]
  - Pain in extremity [Unknown]
